FAERS Safety Report 18254720 (Version 1)
Quarter: 2020Q3

REPORT INFORMATION
  Report Type: Spontaneous
  Country: US (occurrence: US)
  Receive Date: 20200910
  Receipt Date: 20200910
  Transmission Date: 20201103
  Serious: Yes (Death)
  Sender: FDA-Public Use
  Company Number: US-PURDUE-USA-2020-0165670

PATIENT
  Age: 70 Year
  Sex: Male

DRUGS (1)
  1. OXYCODONE HYDROCHLORIDE (SIMILAR TO NDA 22?272) [Suspect]
     Active Substance: OXYCODONE HYDROCHLORIDE
     Indication: ABDOMINAL PAIN UPPER
     Dosage: 10 MG, UNK
     Route: 065

REACTIONS (2)
  - Asthenia [Unknown]
  - Adenocarcinoma pancreas [Fatal]

NARRATIVE: CASE EVENT DATE: 20190124
